FAERS Safety Report 6371147-8 (Version None)
Quarter: 2009Q3

REPORT INFORMATION
  Report Type: 
  Country: None (occurrence: None)
  Receive Date: 20090923
  Receipt Date: 20090909
  Transmission Date: 20100115
  Serious: Yes (Hospitalization)
  Sender: FDA-Public Use
  Company Number: GB-MYLANLABS-MK-6032310

PATIENT
  Age: 16 Month
  Sex: Female

DRUGS (5)
  1. LAMOTRIGINE [Suspect]
     Indication: CONVULSION
     Route: 048
  2. AUGMENTIN [Suspect]
     Indication: DRUG USE FOR UNKNOWN INDICATION
     Dates: start: 20060101, end: 20060101
  3. PHENOXYMETHYLPENICILLIN [Suspect]
     Indication: DRUG USE FOR UNKNOWN INDICATION
  4. PHENYTOIN [Suspect]
     Indication: CONVULSION
  5. FLUCONAZOLE [Concomitant]
     Indication: DRUG USE FOR UNKNOWN INDICATION

REACTIONS (14)
  - ABNORMAL FAECES [None]
  - AUTISM [None]
  - CANDIDIASIS [None]
  - CONVULSION [None]
  - DIARRHOEA [None]
  - DRUG INEFFECTIVE [None]
  - EPISTAXIS [None]
  - LACTOSE INTOLERANCE [None]
  - PHARYNGEAL OEDEMA [None]
  - RASH [None]
  - UPPER LIMB FRACTURE [None]
  - UPPER RESPIRATORY TRACT INFECTION [None]
  - URINARY RETENTION [None]
  - VOMITING PROJECTILE [None]
